FAERS Safety Report 24335108 (Version 1)
Quarter: 2024Q3

REPORT INFORMATION
  Report Type: Spontaneous
  Country: TW (occurrence: TW)
  Receive Date: 20240918
  Receipt Date: 20240918
  Transmission Date: 20241016
  Serious: Yes (Other)
  Sender: MERCK
  Company Number: TW-009507513-2409TWN005285

PATIENT
  Age: 51 Year

DRUGS (1)
  1. PEMBROLIZUMAB [Suspect]
     Active Substance: PEMBROLIZUMAB
     Dosage: UNK

REACTIONS (2)
  - End stage renal disease [Recovered/Resolved]
  - Ejection fraction decreased [Recovered/Resolved]
